FAERS Safety Report 9960412 (Version 1)
Quarter: 2014Q1

REPORT INFORMATION
  Report Type: Spontaneous
  Country: US (occurrence: None)
  Receive Date: 20140304
  Receipt Date: 20140304
  Transmission Date: 20141002
  Serious: Yes (Death, Hospitalization)
  Sender: FDA-Public Use
  Company Number: None

PATIENT
  Age: 92 Year
  Sex: Male
  Weight: 61.24 kg

DRUGS (1)
  1. LUPRON [Suspect]
     Indication: PROSTATE CANCER
     Dosage: IM, BY ONCOLOGIST
     Route: 030
     Dates: start: 20131218, end: 20131218

REACTIONS (16)
  - Bone pain [None]
  - Arthralgia [None]
  - Decreased appetite [None]
  - Irritability [None]
  - Impatience [None]
  - Moaning [None]
  - Feeling abnormal [None]
  - Intestinal dilatation [None]
  - Oedema [None]
  - Hyperaesthesia [None]
  - Physical disability [None]
  - Abdominal pain [None]
  - Paralysis [None]
  - Asthenia [None]
  - Megacolon [None]
  - Cardiac arrest [None]
